FAERS Safety Report 5378598-9 (Version None)
Quarter: 2007Q3

REPORT INFORMATION
  Report Type: 
  Country: None (occurrence: None)
  Receive Date: 20070705
  Receipt Date: 20070627
  Transmission Date: 20080115
  Serious: Yes (Other)
  Sender: FDA-Public Use
  Company Number: BR-ROCHE-504415

PATIENT
  Age: 19 Year
  Sex: Female

DRUGS (3)
  1. NAPROSYN [Suspect]
     Indication: ABDOMINAL PAIN
     Route: 048
     Dates: start: 20070603
  2. CLOMIPRAMINE HCL [Concomitant]
     Indication: DEPRESSION
     Route: 048
     Dates: start: 20070201
  3. CLONAZEPAM [Concomitant]
     Indication: SEDATION
     Route: 048
     Dates: start: 20070201

REACTIONS (2)
  - DRUG INEFFECTIVE [None]
  - VAGINAL HAEMORRHAGE [None]
